FAERS Safety Report 23516078 (Version 1)
Quarter: 2024Q1

REPORT INFORMATION
  Report Type: Spontaneous
  Country: AU (occurrence: AU)
  Receive Date: 20240213
  Receipt Date: 20240213
  Transmission Date: 20240410
  Serious: Yes (Other)
  Sender: FDA-Public Use
  Company Number: AU-JNJFOC-20240219791

PATIENT
  Sex: Female

DRUGS (2)
  1. REMICADE [Suspect]
     Active Substance: INFLIXIMAB
     Indication: Crohn^s disease
     Route: 041
  2. BCG VACCINE [Suspect]
     Active Substance: BCG VACCINE
     Indication: Bladder cancer
     Route: 065

REACTIONS (2)
  - Bladder cancer [Unknown]
  - Contraindication to vaccination [Unknown]
